FAERS Safety Report 7943564-3 (Version None)
Quarter: 2011Q4

REPORT INFORMATION
  Report Type: 
  Country: None (occurrence: None)
  Receive Date: 20111128
  Receipt Date: 20111121
  Transmission Date: 20120403
  Serious: Yes (Hospitalization)
  Sender: FDA-Public Use
  Company Number: PHHO2011BR06065

PATIENT
  Sex: Female
  Weight: 62 kg

DRUGS (24)
  1. BLINDED PLACEBO [Suspect]
     Indication: BREAST CANCER METASTATIC
     Dosage: 10 MG, BID
     Route: 048
     Dates: start: 20101008, end: 20110331
  2. MORPHINE [Concomitant]
     Indication: FLANK PAIN
  3. PACLITAXEL [Suspect]
     Indication: BREAST CANCER METASTATIC
     Dosage: 80 MG/M2
     Route: 042
     Dates: start: 20101008, end: 20110331
  4. HYDROCHLOROTHIAZID [Concomitant]
     Indication: HYPERTENSION
     Dosage: 25 MG, QD
     Route: 048
     Dates: start: 20110218, end: 20110401
  5. INSULIN [Concomitant]
     Indication: DIABETES MELLITUS
     Dosage: 4 IU, BID
     Route: 058
     Dates: start: 20110318, end: 20110331
  6. AFINITOR [Suspect]
     Dosage: 10 MG, BID
     Route: 048
     Dates: start: 20110420
  7. COMPARATOR TRASTUZUMAB [Suspect]
     Indication: BREAST CANCER METASTATIC
     Dosage: 2 MG/KG
     Route: 042
     Dates: start: 20101008, end: 20110331
  8. VASOPRIL [Concomitant]
     Indication: HYPERTENSION
     Dosage: 10 MG, BID
     Route: 048
     Dates: start: 20040101
  9. NPH INSULIN [Concomitant]
     Indication: DIABETES MELLITUS
     Dosage: 10 IU, QD
     Route: 058
     Dates: start: 20110318, end: 20110401
  10. SIMVASTATIN [Concomitant]
     Indication: PROPHYLAXIS
     Dosage: 20 MG, BID
     Dates: start: 20110218
  11. BLINDED NO TREATMENT RECEIVED [Suspect]
     Dosage: 10 MG, BID
     Route: 048
     Dates: start: 20110420
  12. COMPARATOR TRASTUZUMAB [Suspect]
     Dosage: 2 MG/KG
     Route: 042
     Dates: start: 20110414
  13. DIAMICRON [Concomitant]
     Indication: DIABETES MELLITUS
     Dosage: 80 MG, BID
     Route: 048
     Dates: start: 20110218, end: 20110401
  14. SYNTHROID [Concomitant]
     Indication: HYPOTHYROIDISM
     Dosage: 150 UG, QD
     Route: 048
     Dates: start: 20110218
  15. AFINITOR [Suspect]
     Indication: BREAST CANCER METASTATIC
     Dosage: 10 MG, BID
     Route: 048
     Dates: start: 20101008, end: 20110331
  16. ACETYLSALICYLIC ACID SRT [Concomitant]
     Indication: PROPHYLAXIS
     Dosage: 200 MG, QD
     Route: 048
     Dates: start: 20110218, end: 20110401
  17. OMEPRAZOLE [Concomitant]
     Dosage: 40 MG, BID
     Route: 048
     Dates: start: 20110311, end: 20110331
  18. DIPYRONE INJ [Concomitant]
     Indication: BACK PAIN
  19. DIPYRONE INJ [Concomitant]
     Indication: FLANK PAIN
  20. BLINDED PLACEBO [Suspect]
     Dosage: 10 MG, BID
     Route: 048
     Dates: start: 20110420
  21. NPH INSULIN [Concomitant]
     Dosage: 6 IU, QD
     Dates: start: 20110318
  22. MORPHINE [Concomitant]
     Indication: BACK PAIN
  23. BLINDED NO TREATMENT RECEIVED [Suspect]
     Indication: BREAST CANCER METASTATIC
     Dosage: 10 MG, BID
     Route: 048
     Dates: start: 20101008, end: 20110331
  24. ONDANSETRON [Concomitant]
     Indication: PROPHYLAXIS OF NAUSEA AND VOMITING
     Dosage: 80 MG, UNK
     Route: 048
     Dates: start: 20110328, end: 20110331

REACTIONS (1)
  - CHOLECYSTITIS [None]
